FAERS Safety Report 16097196 (Version 6)
Quarter: 2019Q2

REPORT INFORMATION
  Report Type: Spontaneous
  Country: HU (occurrence: HU)
  Receive Date: 20190320
  Receipt Date: 20190618
  Transmission Date: 20190711
  Serious: Yes (Hospitalization, Other)
  Sender: FDA-Public Use
  Company Number: HU-MYLANLABS-2019M1024939

PATIENT
  Age: 75 Year
  Sex: Female

DRUGS (3)
  1. PROPAFENONE. [Interacting]
     Active Substance: PROPAFENONE
     Indication: PRODUCT USED FOR UNKNOWN INDICATION
     Dosage: CHRONIC THERAPY
     Route: 065
  2. TERBINAFINE. [Suspect]
     Active Substance: TERBINAFINE
     Indication: ARTHROPOD STING
     Dosage: UNK
     Route: 065
  3. AMOXICILLIN/CLAVULANIC ACID [Interacting]
     Active Substance: AMOXICILLIN\CLAVULANIC ACID
     Indication: ARTHROPOD STING
     Dosage: UNK
     Route: 065

REACTIONS (14)
  - Hyperkalaemia [Recovered/Resolved]
  - Sinus bradycardia [Recovered/Resolved]
  - Acute kidney injury [Recovered/Resolved]
  - Medication error [Unknown]
  - Acute hepatic failure [Recovered/Resolved]
  - Ventricular tachycardia [Recovered/Resolved]
  - Overdose [Recovered/Resolved]
  - Drug abuse [Unknown]
  - Arrhythmia supraventricular [Recovered/Resolved]
  - Altered state of consciousness [Recovered/Resolved]
  - Toxicity to various agents [Recovered/Resolved]
  - Intentional product misuse [Unknown]
  - Drug interaction [Unknown]
  - Conduction disorder [Recovered/Resolved]
